FAERS Safety Report 16914431 (Version 1)
Quarter: 2019Q4

REPORT INFORMATION
  Report Type: Spontaneous
  Country: BE (occurrence: BE)
  Receive Date: 20191014
  Receipt Date: 20191014
  Transmission Date: 20200122
  Serious: Yes (Death, Hospitalization, Other)
  Sender: FDA-Public Use
  Company Number: BE-SA-2019SA281638

PATIENT
  Age: 73 Year
  Sex: Female

DRUGS (1)
  1. PRALUENT [Suspect]
     Active Substance: ALIROCUMAB
     Indication: TYPE IIA HYPERLIPIDAEMIA
     Dosage: 75 MG
     Route: 058

REACTIONS (6)
  - Sepsis [Fatal]
  - Pyrexia [Fatal]
  - Endocarditis [Fatal]
  - Myocardiac abscess [Fatal]
  - Respiratory distress [Fatal]
  - Fatigue [Fatal]

NARRATIVE: CASE EVENT DATE: 201702
